FAERS Safety Report 9350663 (Version 1)
Quarter: 2013Q2

REPORT INFORMATION
  Report Type: Spontaneous
  Country: NO (occurrence: NO)
  Receive Date: 20130617
  Receipt Date: 20130617
  Transmission Date: 20140414
  Serious: Yes (Hospitalization)
  Sender: FDA-Public Use
  Company Number: PHHY2013NO059339

PATIENT
  Age: 38 Year
  Sex: Female

DRUGS (4)
  1. VOLTAROL [Suspect]
     Indication: TOOTHACHE
     Dosage: 25 MG, 3-4 TIMES DAILY
     Route: 048
     Dates: start: 20130513, end: 20130517
  2. ESCITALOPRAM ACTAVIS [Interacting]
     Indication: DEPRESSION
     Dosage: 15 MG, QD
     Route: 048
  3. IMOVANE [Concomitant]
     Indication: SLEEP DISORDER
     Dosage: 7.5 MG, QD
     Route: 048
  4. PARACET [Concomitant]
     Indication: TOOTHACHE
     Dosage: 500 MG, (3-4 TIMES)
     Route: 048
     Dates: start: 20130513, end: 20130513

REACTIONS (1)
  - Epistaxis [Recovered/Resolved]
